FAERS Safety Report 4953247-X (Version None)
Quarter: 2006Q1

REPORT INFORMATION
  Report Type: 
  Country: None (occurrence: None)
  Receive Date: 20060324
  Receipt Date: 20050318
  Transmission Date: 20060701
  Serious: Yes (Hospitalization, Disabling)
  Sender: FDA-Public Use
  Company Number: US-MERCK-0503USA03799

PATIENT
  Age: 78 Year
  Sex: Female

DRUGS (6)
  1. VIOXX [Suspect]
     Route: 048
     Dates: start: 20010402, end: 20020901
  2. COUMADIN [Concomitant]
     Indication: MITRAL VALVE REPLACEMENT
     Route: 048
     Dates: start: 19890101
  3. COUMADIN [Concomitant]
     Indication: ATRIAL FIBRILLATION
     Route: 048
     Dates: start: 19890101
  4. PROTONIX [Concomitant]
     Route: 048
  5. VENTOLIN [Concomitant]
     Route: 055
  6. EVISTA [Concomitant]
     Route: 048

REACTIONS (16)
  - ARTERIOSCLEROSIS [None]
  - ATRIAL FLUTTER [None]
  - ATRIOVENTRICULAR BLOCK [None]
  - BRADYCARDIA [None]
  - BRAIN STEM INFARCTION [None]
  - CEREBELLAR ATROPHY [None]
  - CEREBELLAR INFARCTION [None]
  - CEREBROVASCULAR ACCIDENT [None]
  - DILATATION ATRIAL [None]
  - EJECTION FRACTION DECREASED [None]
  - GASTRITIS [None]
  - GASTROOESOPHAGEAL REFLUX DISEASE [None]
  - IDIOPATHIC THROMBOCYTOPENIC PURPURA [None]
  - PLATELET COUNT DECREASED [None]
  - PULMONARY HYPERTENSION [None]
  - THALAMUS HAEMORRHAGE [None]
